FAERS Safety Report 7207708-3 (Version None)
Quarter: 2011Q1

REPORT INFORMATION
  Report Type: 
  Country: None (occurrence: None)
  Receive Date: 20110103
  Receipt Date: 20101220
  Transmission Date: 20110831
  Serious: Yes (Other)
  Sender: FDA-Public Use
  Company Number: NO-GENENTECH-310804

PATIENT
  Sex: Female
  Weight: 73 kg

DRUGS (4)
  1. XOLAIR [Suspect]
     Indication: ASTHMA
     Dosage: 225 MG, UNK
     Dates: start: 20100215, end: 20100608
  2. BLOOD PRESSURE MEDICATION NOS [Concomitant]
     Indication: BLOOD PRESSURE
  3. XOLAIR [Suspect]
     Dosage: 225 MG, UNK
     Dates: start: 20101102, end: 20101116
  4. STEROIDS (UNK INGREDIENTS) [Concomitant]
     Indication: ASTHMA

REACTIONS (9)
  - HYPERSENSITIVITY [None]
  - PYREXIA [None]
  - OEDEMA [None]
  - PRODUCT TASTE ABNORMAL [None]
  - HEADACHE [None]
  - PRURITUS [None]
  - BREATH ODOUR [None]
  - ERYTHEMA [None]
  - SKIN ODOUR ABNORMAL [None]
